FAERS Safety Report 18172675 (Version 1)
Quarter: 2020Q3

REPORT INFORMATION
  Report Type: Spontaneous
  Country: US (occurrence: US)
  Receive Date: 20200819
  Receipt Date: 20200819
  Transmission Date: 20201103
  Serious: Yes (Death, Other)
  Sender: FDA-Public Use
  Company Number: US-PURDUE-USA-2020-0161592

PATIENT
  Age: 67 Year
  Sex: Female

DRUGS (1)
  1. OXYCONTIN [Suspect]
     Active Substance: OXYCODONE HYDROCHLORIDE
     Indication: PAIN
     Dosage: 80 MG, DAILY
     Route: 048

REACTIONS (6)
  - Deep vein thrombosis [Fatal]
  - Chronic obstructive pulmonary disease [Fatal]
  - Somnolence [Unknown]
  - Pulmonary embolism [Fatal]
  - Hypoxia [Fatal]
  - Drug dependence [Unknown]

NARRATIVE: CASE EVENT DATE: 20160122
